FAERS Safety Report 5675570-6 (Version None)
Quarter: 2008Q1

REPORT INFORMATION
  Report Type: 
  Country: None (occurrence: None)
  Receive Date: 20080321
  Receipt Date: 20080311
  Transmission Date: 20080703
  Serious: Yes (Hospitalization, Disabling)
  Sender: FDA-Public Use
  Company Number: FR-JNJFOC-20080302324

PATIENT
  Age: 50 Year
  Sex: Female

DRUGS (5)
  1. TAVANIC [Suspect]
     Indication: BRONCHITIS
     Route: 048
  2. PULMICORT [Concomitant]
     Indication: ASTHMA
     Route: 065
  3. SINGULAIR [Concomitant]
     Indication: ASTHMA
     Route: 065
  4. QUITAXON [Concomitant]
     Indication: DEPRESSION
     Route: 065
  5. TRANXENE [Concomitant]
     Indication: DEPRESSION
     Route: 065

REACTIONS (5)
  - ARTHRALGIA [None]
  - FATIGUE [None]
  - MYALGIA [None]
  - TENDONITIS [None]
  - VISUAL DISTURBANCE [None]
